FAERS Safety Report 17189208 (Version 1)
Quarter: 2019Q4

REPORT INFORMATION
  Report Type: Spontaneous
  Country: DE (occurrence: DE)
  Receive Date: 20191223
  Receipt Date: 20191223
  Transmission Date: 20200122
  Serious: Yes (Hospitalization)
  Sender: FDA-Public Use
  Company Number: DE-TEVA-2019-DE-1155563

PATIENT
  Age: 84 Year
  Sex: Male

DRUGS (13)
  1. PANTOPRAZOL [Concomitant]
     Active Substance: PANTOPRAZOLE SODIUM
     Dosage: 20 MG, 2-0-0-0, TABLETS
     Route: 048
  2. TILICOMP BETA 50MG/4MG [Concomitant]
     Dosage: 50|4 MG, DEMAND, TABLETS
     Route: 048
  3. ARANESP 60MIKROGRAMM [Concomitant]
     Dosage: 60 MICROGRAMS, 1X/WEEK, SOLUTION FOR INJECTION/INFUSION
     Route: 058
  4. BICANORM [Concomitant]
     Active Substance: SODIUM BICARBONATE
     Dosage: 1 G, 1-1-1-0, TABLETS
     Route: 048
  5. PREDNISOLON [Suspect]
     Active Substance: PREDNISOLONE
     Dosage: 10 MG, 0.25-0-0-0, TABLETS
     Route: 048
  6. METAMIZOL [Concomitant]
     Active Substance: METAMIZOLE SODIUM
     Dosage: 30 GTT, 1-1-1-1, DROPS
     Route: 048
  7. BISOPROLOL [Concomitant]
     Active Substance: BISOPROLOL
     Dosage: 10 MG, 1-0-0-0, TABLETS
     Route: 048
  8. MELPERON [Concomitant]
     Active Substance: MELPERONE
     Dosage: 15 ML, 0-0-0-1, SOLUTION
     Route: 048
  9. ELIQUIS [Suspect]
     Active Substance: APIXABAN
     Dosage: 2.5 MG, 1-0-1-0, TABLETS
     Route: 048
  10. TOREM [Concomitant]
     Active Substance: TORSEMIDE
     Dosage: 20 MG, 2-2-0-0, TABLETS
     Route: 048
  11. LOPERAMID [Concomitant]
     Active Substance: LOPERAMIDE
     Dosage: 2 MG, NEED, TABLETS
     Route: 048
  12. ALLOPURINOL. [Concomitant]
     Active Substance: ALLOPURINOL
     Dosage: 300 MG, 0.5-0-0-0, TABLETS (150 MG PER DAY)
     Route: 048
  13. FERRO-SANOL DUODENAL [Concomitant]
     Active Substance: FERROUS GLYCINE SULFATE
     Dosage: 100 MG, 1-0-0-0, RETARD TABLETS
     Route: 048

REACTIONS (2)
  - Anaemia [Unknown]
  - Dizziness [Unknown]
